FAERS Safety Report 6157660-7 (Version None)
Quarter: 2009Q2

REPORT INFORMATION
  Report Type: 
  Country: None (occurrence: None)
  Receive Date: 20090416
  Receipt Date: 20090410
  Transmission Date: 20091009
  Serious: Yes (Death, Hospitalization)
  Sender: FDA-Public Use
  Company Number: FR-CELGENEUS-056-CCAZA-09041230

PATIENT

DRUGS (3)
  1. AZACITIDINE [Suspect]
     Route: 058
  2. PLATELETS [Concomitant]
     Indication: DRUG USE FOR UNKNOWN INDICATION
     Route: 051
  3. ERYTHOID [Concomitant]
     Indication: DRUG USE FOR UNKNOWN INDICATION
     Route: 051

REACTIONS (3)
  - BACTERAEMIA [None]
  - DISEASE PROGRESSION [None]
  - PNEUMONIA [None]
